FAERS Safety Report 5511893-9 (Version None)
Quarter: 2007Q4

REPORT INFORMATION
  Report Type: 
  Country: None (occurrence: None)
  Receive Date: 20071109
  Receipt Date: 20071030
  Transmission Date: 20080405
  Serious: Yes (Other)
  Sender: FDA-Public Use
  Company Number: US-PFIZER INC-2007091262

PATIENT
  Sex: Female

DRUGS (7)
  1. DILANTIN [Suspect]
  2. NEURONTIN [Concomitant]
  3. TEGRETOL [Concomitant]
  4. OXYCONTIN [Concomitant]
  5. OXYCODONE HCL [Concomitant]
  6. HYDROCODONE BITARTRATE [Concomitant]
  7. ALL OTHER THERAPEUTIC PRODUCTS [Concomitant]

REACTIONS (4)
  - HERPES ZOSTER [None]
  - HERPES ZOSTER OPHTHALMIC [None]
  - PAIN [None]
  - PAIN IN EXTREMITY [None]
